FAERS Safety Report 7978445-2 (Version None)
Quarter: 2011Q4

REPORT INFORMATION
  Report Type: 
  Country: None (occurrence: None)
  Receive Date: 20111205
  Receipt Date: 20111122
  Transmission Date: 20120403
  Serious: Yes (Hospitalization)
  Sender: FDA-Public Use
  Company Number: 2011SP053600

PATIENT
  Age: 44 Year
  Sex: Male
  Weight: 80 kg

DRUGS (2)
  1. PEG-INTRON [Suspect]
     Indication: HEPATITIS C
     Dosage: 120 MCG;QW;SC
     Route: 058
     Dates: start: 20110322, end: 20110821
  2. REBETOL [Suspect]
     Indication: HEPATITIS C
     Dosage: 1000 MG;QD;PO
     Route: 048
     Dates: start: 20110322

REACTIONS (23)
  - RESPIRATORY FAILURE [None]
  - OEDEMATOUS PANCREATITIS [None]
  - THROMBOCYTOPENIA [None]
  - PNEUMONIA [None]
  - DEPRESSION [None]
  - CELLULITIS [None]
  - RENAL FAILURE ACUTE [None]
  - HYPONATRAEMIA [None]
  - HEMIPARESIS [None]
  - DECUBITUS ULCER [None]
  - WITHDRAWAL SYNDROME [None]
  - HYPERVENTILATION [None]
  - HAEMANGIOMA OF LIVER [None]
  - AGITATION [None]
  - LOSS OF CONSCIOUSNESS [None]
  - DIALYSIS [None]
  - NORMOCHROMIC NORMOCYTIC ANAEMIA [None]
  - SEPTIC SHOCK [None]
  - POLYNEUROPATHY [None]
  - HYPOPHOSPHATAEMIA [None]
  - PERICHONDRITIS [None]
  - HYPOTHERMIA [None]
  - REFUSAL OF TREATMENT BY PATIENT [None]
